FAERS Safety Report 7431689-0 (Version None)
Quarter: 2011Q2

REPORT INFORMATION
  Report Type: 
  Country: None (occurrence: None)
  Receive Date: 20110422
  Receipt Date: 20110414
  Transmission Date: 20111010
  Serious: Yes (Hospitalization)
  Sender: FDA-Public Use
  Company Number: US-BIOGENIDEC-2011BI003982

PATIENT
  Age: 53 Year
  Sex: Female

DRUGS (4)
  1. PROZAC [Concomitant]
  2. TYSABRI [Suspect]
     Indication: MULTIPLE SCLEROSIS
     Route: 042
     Dates: start: 20070601
  3. MECLIZINE [Concomitant]
  4. PROVIGIL [Concomitant]

REACTIONS (3)
  - HYSTERECTOMY [None]
  - MYALGIA [None]
  - HYPOAESTHESIA FACIAL [None]
